FAERS Safety Report 24161549 (Version 1)
Quarter: 2024Q3

REPORT INFORMATION
  Report Type: Spontaneous
  Country: FR (occurrence: FR)
  Receive Date: 20240801
  Receipt Date: 20240801
  Transmission Date: 20241016
  Serious: Yes (Hospitalization, Other)
  Sender: SANOFI AVENTIS
  Company Number: None

PATIENT
  Age: 79 Year
  Sex: Female
  Weight: 97.5 kg

DRUGS (12)
  1. FERROUS FUMARATE [Suspect]
     Active Substance: FERROUS FUMARATE
     Indication: Iron deficiency anaemia
     Dosage: 1-1-1 COATED TABLETS
     Route: 048
     Dates: start: 20240523, end: 20240530
  2. FOLIC ACID [Suspect]
     Active Substance: FOLIC ACID
     Indication: Anaemia folate deficiency
     Dosage: 1-0-0
     Route: 048
     Dates: start: 20240523, end: 20240530
  3. AMOXICILLIN\CLAVULANATE POTASSIUM [Suspect]
     Active Substance: AMOXICILLIN\CLAVULANATE POTASSIUM
     Indication: Urinary tract infection
     Dosage: 1 SACHET MORNING, NOON, EVENING, POWDER FOR ORAL SUSPENSION
     Route: 048
     Dates: start: 20240523, end: 20240528
  4. PANTOPRAZOLE [Suspect]
     Active Substance: PANTOPRAZOLE
     Indication: Oesophagitis haemorrhagic
     Dosage: CONTINUOUSLY, BY 24 H AT IVSE 8 MG/H, POWDER FOR SOLUTION FOR INJECTION
     Route: 042
     Dates: start: 20240530
  5. PANTOPRAZOLE [Suspect]
     Active Substance: PANTOPRAZOLE
     Dosage: CONTINUOUSLY, BY 24 H AT IVSE 8 MG/H
     Route: 042
     Dates: start: 20240525, end: 20240529
  6. LOVENOX [Suspect]
     Active Substance: ENOXAPARIN SODIUM
     Indication: Thrombosis prophylaxis
     Dosage: 4,000 IU ANTI-XA/0.4 ML, INJECTABLE SOLUTION IN CARTRIDGE
     Route: 058
     Dates: start: 20240521, end: 20240521
  7. LOVENOX [Suspect]
     Active Substance: ENOXAPARIN SODIUM
     Dosage: 4,000 IU ANTI-XA/0.4 ML, INJECTABLE SOLUTION IN CARTRIDGE, INJECTION
     Route: 058
     Dates: start: 20240526
  8. ALDACTAZINE [Concomitant]
     Active Substance: ALTHIAZIDE\SPIRONOLACTONE
     Dosage: 0.5 TABLET IN THE MORNING
  9. ACETAMINOPHEN [Concomitant]
     Active Substance: ACETAMINOPHEN
     Dosage: 3 TABLETS DAILY
  10. HERBALS [Concomitant]
     Active Substance: HERBALS
     Dosage: 2 TABLETS IN THE EVENING AND 2 TABLETS AT BEDTIME
  11. CHOLECALCIFEROL [Concomitant]
     Active Substance: CHOLECALCIFEROL
  12. ECONAZOLE [Concomitant]
     Active Substance: ECONAZOLE
     Dosage: 1 APPLICATION MORNING EVENING

REACTIONS (2)
  - Symmetrical drug-related intertriginous and flexural exanthema [Recovering/Resolving]
  - Eosinophilia [Recovered/Resolved]

NARRATIVE: CASE EVENT DATE: 20240528
